FAERS Safety Report 14020459 (Version 1)
Quarter: 2017Q3

REPORT INFORMATION
  Report Type: Spontaneous
  Country: US (occurrence: US)
  Receive Date: 20170928
  Receipt Date: 20170928
  Transmission Date: 20171128
  Serious: Yes (Other)
  Sender: FDA-Public Use
  Company Number: US-APOTEX-2017AP018832

PATIENT
  Age: 23 Month
  Sex: Male

DRUGS (1)
  1. OXCARBAZEPINE. [Suspect]
     Active Substance: OXCARBAZEPINE
     Indication: SEIZURE
     Dosage: 4.5 G ESTIMATED
     Route: 065

REACTIONS (3)
  - Seizure like phenomena [Unknown]
  - Accidental overdose [Unknown]
  - Depressed level of consciousness [Unknown]
